FAERS Safety Report 11169547 (Version 2)
Quarter: 2015Q2

REPORT INFORMATION
  Report Type: Spontaneous
  Country: US (occurrence: US)
  Receive Date: 20150605
  Receipt Date: 20150612
  Transmission Date: 20150821
  Serious: Yes (Hospitalization)
  Sender: FDA-Public Use
  Company Number: US-ASTRAZENECA-2015SE54502

PATIENT
  Age: 62 Year
  Sex: Female
  Weight: 73 kg

DRUGS (6)
  1. ASPIRIN. [Concomitant]
     Active Substance: ASPIRIN
     Indication: PROPHYLAXIS
  2. ASPIRIN. [Concomitant]
     Active Substance: ASPIRIN
     Indication: PROPHYLAXIS
  3. TICAGRELOR [Interacting]
     Active Substance: TICAGRELOR
     Indication: PROPHYLAXIS
     Route: 048
  4. TICAGRELOR [Suspect]
     Active Substance: TICAGRELOR
     Indication: PROPHYLAXIS
     Route: 048
  5. ATORVASTATIN [Interacting]
     Active Substance: ATORVASTATIN
     Indication: PROPHYLAXIS
  6. METOPROLOL [Concomitant]
     Active Substance: METOPROLOL
     Indication: PROPHYLAXIS

REACTIONS (3)
  - Drug interaction [Recovered/Resolved]
  - Rhabdomyolysis [Recovered/Resolved]
  - Acute kidney injury [Recovered/Resolved]
